FAERS Safety Report 9207071 (Version 1)
Quarter: 2013Q2

REPORT INFORMATION
  Report Type: Report from Study
  Country: US (occurrence: US)
  Receive Date: 20130403
  Receipt Date: 20130403
  Transmission Date: 20140414
  Serious: Yes (Hospitalization)
  Sender: FDA-Public Use
  Company Number: PHEH2013US001860

PATIENT
  Age: 60 Year
  Sex: Male

DRUGS (1)
  1. CLOZARIL [Suspect]
     Dosage: UNK UKN, UNK

REACTIONS (5)
  - Pneumonitis [Unknown]
  - Dysphagia [Unknown]
  - Pneumonia [Unknown]
  - Neutrophil count increased [Unknown]
  - White blood cell count increased [Recovered/Resolved]
